FAERS Safety Report 7347133-8 (Version None)
Quarter: 2011Q1

REPORT INFORMATION
  Report Type: 
  Country: None (occurrence: None)
  Receive Date: 20110303
  Receipt Date: 20110222
  Transmission Date: 20110831
  Serious: Yes (Other)
  Sender: FDA-Public Use
  Company Number: ZYD-11-AE-030

PATIENT
  Age: 17 Year
  Sex: Male

DRUGS (2)
  1. TOPIRAMATE 50MG TABLETS (ZYDUS) [Suspect]
     Indication: HEADACHE
     Dosage: 50MG - QHS - ORAL
     Route: 048
     Dates: start: 20110217, end: 20110217
  2. TOPIRAMATE 50MG TABLETS (ZYDUS) [Suspect]
     Indication: INSOMNIA
     Dosage: 50MG - QHS - ORAL
     Route: 048
     Dates: start: 20110217, end: 20110217

REACTIONS (5)
  - ERYTHEMA [None]
  - SWELLING FACE [None]
  - CHEILITIS [None]
  - DRUG INEFFECTIVE [None]
  - STOMATITIS [None]
